FAERS Safety Report 8997105 (Version 1)
Quarter: 2013Q1

REPORT INFORMATION
  Report Type: Report from Study
  Country: US (occurrence: US)
  Receive Date: 20130104
  Receipt Date: 20130104
  Transmission Date: 20140127
  Serious: Yes (Hospitalization)
  Sender: FDA-Public Use
  Company Number: US-JNJFOC-20130100059

PATIENT
  Age: 20 Year
  Sex: Male
  Weight: 70 kg

DRUGS (8)
  1. REMICADE [Suspect]
     Indication: CROHN^S DISEASE
     Route: 042
     Dates: start: 20071017
  2. BUDESONIDE [Concomitant]
  3. ANTIBIOTICS [Concomitant]
     Indication: INFLAMMATORY BOWEL DISEASE
  4. METHOTREXATE [Concomitant]
  5. CITRACAL D [Concomitant]
  6. FOLATE [Concomitant]
  7. MIRALAX [Concomitant]
  8. PREDNISONE [Concomitant]

REACTIONS (1)
  - Rectal haemorrhage [Recovered/Resolved]
